FAERS Safety Report 9266829 (Version 3)
Quarter: 2013Q2

REPORT INFORMATION
  Report Type: Spontaneous
  Country: JP (occurrence: JP)
  Receive Date: 20130502
  Receipt Date: 20130515
  Transmission Date: 20140414
  Serious: Yes (Hospitalization)
  Sender: FDA-Public Use
  Company Number: JP-VERTEX PHARMACEUTICALS INC-2013-005595

PATIENT
  Age: 62 Year
  Sex: Female

DRUGS (9)
  1. TELAVIC [Suspect]
     Indication: CHRONIC HEPATITIS C
     Dosage: 1500 MG, QD
     Route: 048
     Dates: start: 20130315, end: 20130419
  2. RIBAVIRIN [Suspect]
     Indication: CHRONIC HEPATITIS C
     Dosage: 400 MG, QD
     Route: 048
     Dates: start: 20130315, end: 20130419
  3. PEGINTERFERON ALFA-2B [Suspect]
     Indication: CHRONIC HEPATITIS C
     Dosage: 1.5 ?G/KG, QW
     Route: 058
     Dates: start: 20130315, end: 20130412
  4. ZYLORIC [Suspect]
     Indication: CONCOMITANT DISEASE PROGRESSION
     Dosage: 200 MG, QD
     Route: 048
     Dates: start: 20130316, end: 20130419
  5. EDIROL [Concomitant]
     Dosage: 0.75 ?G, QD
     Route: 048
  6. GLAKAY [Concomitant]
     Dosage: 45 MG, QD
     Route: 048
  7. ALLELOCK [Concomitant]
     Dosage: 10 MG, QD
     Route: 048
     Dates: start: 20130318
  8. DOGMATYL [Concomitant]
     Dosage: 150 MG, QD
     Route: 048
     Dates: start: 20130329, end: 20130419
  9. NEXIUM [Concomitant]
     Dosage: 20 MG, QD
     Route: 048
     Dates: start: 20130412

REACTIONS (1)
  - Erythema [Recovered/Resolved]
